FAERS Safety Report 6274720-0 (Version None)
Quarter: 2009Q3

REPORT INFORMATION
  Report Type: 
  Country: None (occurrence: None)
  Receive Date: 20090721
  Receipt Date: 20070605
  Transmission Date: 20100115
  Serious: Yes (Other)
  Sender: FDA-Public Use
  Company Number: US-ASTRAZENECA-2006UW03786

PATIENT
  Age: 495 Month
  Sex: Male
  Weight: 68.9 kg

DRUGS (36)
  1. SEROQUEL [Suspect]
     Indication: BIPOLAR DISORDER
     Dosage: 50-200 MG
     Route: 048
     Dates: start: 20011016
  2. SEROQUEL [Suspect]
     Dosage: 200 TO 300 MG
     Route: 048
     Dates: start: 20020101
  3. ZYPREXA [Suspect]
     Indication: BIPOLAR DISORDER
     Dosage: 10 TO 25 MG
     Dates: start: 19980101
  4. ABILIFY [Concomitant]
     Dates: start: 20060101
  5. GEODON [Concomitant]
     Dates: start: 20010101, end: 20020101
  6. HALDOL [Concomitant]
     Dates: start: 19920101
  7. NAVANE [Concomitant]
     Dates: start: 19860101, end: 19920101
  8. STELAZINE [Concomitant]
     Dates: start: 19950101
  9. THORAZINE [Concomitant]
     Dates: start: 19860101
  10. LITHOBID [Concomitant]
  11. RESTORIL [Concomitant]
  12. HYDROXYZINE PAMOATE [Concomitant]
  13. LORAZEPAM [Concomitant]
  14. DIAZEPAM [Concomitant]
  15. LOTENSIN [Concomitant]
  16. KLONOPIN [Concomitant]
  17. AMBIEN [Concomitant]
  18. NORVASC [Concomitant]
  19. VIAGRA [Concomitant]
  20. OLANZAPINE [Concomitant]
  21. DEPAKOTE [Concomitant]
  22. VASOTEC [Concomitant]
  23. SONATA [Concomitant]
  24. HYDROCHLOROTHIAZIDE [Concomitant]
  25. CALCIUM CARBONATE [Concomitant]
  26. DOXAZOSIN MESYLATE [Concomitant]
  27. PRAZSOIN HCL [Concomitant]
  28. EFFEXOR XR [Concomitant]
  29. NPH INSULIN [Concomitant]
  30. METFORMIN HCL [Concomitant]
  31. REMERON [Concomitant]
  32. GLYBURIDE [Concomitant]
  33. PROTONIX [Concomitant]
  34. TAMSULOSIN HCL [Concomitant]
  35. AMANTADINE HCL [Concomitant]
  36. ASPIRIN [Concomitant]
     Dates: start: 20060925

REACTIONS (2)
  - DIABETES MELLITUS [None]
  - DIABETIC RETINOPATHY [None]
